FAERS Safety Report 10071241 (Version 1)
Quarter: 2014Q2

REPORT INFORMATION
  Report Type: Spontaneous
  Country: GB (occurrence: GB)
  Receive Date: 20140410
  Receipt Date: 20140410
  Transmission Date: 20141212
  Serious: Yes (Other)
  Sender: FDA-Public Use
  Company Number: CHNY2014GB000999

PATIENT
  Age: 59 Year
  Sex: Female
  Weight: 64 kg

DRUGS (14)
  1. SCOPODERM TTS [Suspect]
     Indication: SALIVARY HYPERSECRETION
     Dosage: UNK
     Route: 062
     Dates: start: 20140326
  2. SCOPODERM TTS [Suspect]
     Dosage: UNK
     Route: 062
     Dates: start: 20140317, end: 20140318
  3. SCOPODERM TTS [Suspect]
     Dosage: UNK
     Route: 062
     Dates: start: 20140224, end: 20140225
  4. SCOPODERM TTS [Suspect]
     Dosage: UNK
     Route: 062
     Dates: start: 20140116, end: 20140117
  5. SCOPODERM TTS [Suspect]
     Dosage: UNK
     Route: 062
     Dates: start: 20131230, end: 20131231
  6. BACLOFEN [Concomitant]
     Dates: start: 20131209
  7. CARBAMAZEPINE [Concomitant]
     Dates: start: 20131209
  8. DANTROLENE [Concomitant]
     Dates: start: 20140204
  9. LACTULOSE [Concomitant]
     Dates: start: 20131230, end: 20140301
  10. NUTRITION SUPPLEMENTS [Concomitant]
     Dates: start: 20131205, end: 20140325
  11. ZACIN [Concomitant]
     Dosage: UNK
     Dates: start: 20140317, end: 20140318
  12. ZACIN [Concomitant]
     Dosage: UNK
     Dates: start: 20140204, end: 20140205
  13. ZACIN [Concomitant]
     Dosage: UNK
     Dates: start: 20140116, end: 20140117
  14. ZACIN [Concomitant]
     Dosage: UNK
     Dates: start: 20131230, end: 20131231

REACTIONS (1)
  - Application site rash [Not Recovered/Not Resolved]
